FAERS Safety Report 8362465-2 (Version None)
Quarter: 2012Q2

REPORT INFORMATION
  Report Type: 
  Country: None (occurrence: None)
  Receive Date: 20120514
  Receipt Date: 20120514
  Transmission Date: 20120825
  Serious: Yes (Life-Threatening, Disabling)
  Sender: FDA-Public Use
  Company Number: None

PATIENT
  Age: 29 Year
  Sex: Male
  Weight: 84 kg

DRUGS (1)
  1. PROPECIA [Suspect]
     Indication: ANDROGENETIC ALOPECIA
     Dosage: 1MG DAILY PO
     Route: 048
     Dates: start: 20120405, end: 20120413

REACTIONS (22)
  - SELF ESTEEM INFLATED [None]
  - DYSARTHRIA [None]
  - EJACULATION DISORDER [None]
  - PRURITUS [None]
  - ALOPECIA [None]
  - PANIC ATTACK [None]
  - INSOMNIA [None]
  - DYSURIA [None]
  - MENTAL IMPAIRMENT [None]
  - SEMEN VISCOSITY INCREASED [None]
  - LIBIDO DECREASED [None]
  - FATIGUE [None]
  - HAIR GROWTH ABNORMAL [None]
  - SUICIDAL IDEATION [None]
  - SEMEN VOLUME DECREASED [None]
  - ELEVATED MOOD [None]
  - DEPRESSION [None]
  - ARTHRALGIA [None]
  - TESTICULAR PAIN [None]
  - MUSCULAR WEAKNESS [None]
  - OLIGURIA [None]
  - ERECTILE DYSFUNCTION [None]
